FAERS Safety Report 9660640 (Version 2)
Quarter: 2013Q4

REPORT INFORMATION
  Report Type: Spontaneous
  Country: FR (occurrence: FR)
  Receive Date: 20131031
  Receipt Date: 20131203
  Transmission Date: 20140711
  Serious: Yes (Other)
  Sender: FDA-Public Use
  Company Number: FR-BAYER-2013-131618

PATIENT
  Age: 51 Year
  Sex: Female

DRUGS (17)
  1. DIANE 35 [Suspect]
     Dosage: UNK
     Route: 048
  2. JASMINE [Suspect]
     Route: 048
  3. JASMINELLE [Suspect]
     Route: 048
  4. RHINOFLUIMUCIL [Suspect]
     Indication: NASAL CONGESTION
     Dosage: UNK
  5. RHINADVIL [Suspect]
     Indication: NASAL CONGESTION
  6. DOLI RHUME [Suspect]
     Indication: NASAL CONGESTION
  7. ACTIFED [Suspect]
     Indication: NASAL CONGESTION
  8. RINUTAN [Suspect]
     Indication: NASAL CONGESTION
     Dosage: UNK
     Dates: start: 1987
  9. ADEPAL [Suspect]
  10. BECLOMETASONE [Concomitant]
     Dosage: UNK
     Dates: start: 201307
  11. AMOXICILLIN [Concomitant]
     Dosage: 1 G, TID
     Dates: start: 20130322, end: 20130328
  12. PREDNISOLONE [Concomitant]
     Dosage: 40 MG, QD
     Dates: start: 20130322, end: 20130325
  13. PRORHINEL [Concomitant]
     Dosage: UNK
     Dates: start: 20130322
  14. MONAZOL [Concomitant]
     Dosage: UNK
     Dates: start: 20130322
  15. MIZOLLEN [Concomitant]
     Dosage: UNK
     Dates: start: 20130322
  16. FUNGIZONE [Concomitant]
     Dosage: UNK
     Dates: start: 20130103, end: 20130117
  17. MAGNESIUM OLIGOSOL [Concomitant]
     Dosage: UNK
     Dates: start: 20130103, end: 201304

REACTIONS (1)
  - Pulmonary arterial hypertension [Not Recovered/Not Resolved]
